FAERS Safety Report 6911345-5 (Version None)
Quarter: 2010Q3

REPORT INFORMATION
  Report Type: 
  Country: None (occurrence: None)
  Receive Date: 20100806
  Receipt Date: 20100730
  Transmission Date: 20110219
  Serious: Yes (Hospitalization, Other)
  Sender: FDA-Public Use
  Company Number: BR-BRISTOL-MYERS SQUIBB COMPANY-15171259

PATIENT
  Age: 38 Year
  Sex: Female

DRUGS (1)
  1. BARACLUDE [Suspect]
     Indication: HEPATITIS B
     Dosage: INTERRUPTED ON APR2010 AND RESTARTED.
     Dates: start: 20091001

REACTIONS (3)
  - DRUG INEFFECTIVE [None]
  - SMALL INTESTINAL PERFORATION [None]
  - TRANSAMINASES INCREASED [None]
